FAERS Safety Report 22373841 (Version 1)
Quarter: 2023Q2

REPORT INFORMATION
  Report Type: Spontaneous
  Country: None (occurrence: US)
  Receive Date: 20230526
  Receipt Date: 20230526
  Transmission Date: 20230721
  Serious: No
  Sender: FDA-Public Use
  Company Number: US-Akorn Operating Company, LLC-2142053

PATIENT
  Sex: Female

DRUGS (1)
  1. FENTANYL CITRATE [Suspect]
     Active Substance: FENTANYL CITRATE

REACTIONS (8)
  - Pain [Unknown]
  - Depression [Unknown]
  - Gastrointestinal pain [Unknown]
  - Sedation [Unknown]
  - Lethargy [Unknown]
  - Euphoric mood [Unknown]
  - Dermatitis bullous [Unknown]
  - Intentional product misuse [Unknown]
